FAERS Safety Report 7046484-4 (Version None)
Quarter: 2010Q4

REPORT INFORMATION
  Report Type: 
  Country: None (occurrence: None)
  Receive Date: 20101014
  Receipt Date: 20101004
  Transmission Date: 20110411
  Serious: Yes (Hospitalization, Other)
  Sender: FDA-Public Use
  Company Number: PHHY2010US66147

PATIENT
  Age: 19 Year
  Sex: Male

DRUGS (5)
  1. SANDIMMUNE [Suspect]
     Dosage: UNK
  2. ACYCLOVIR [Concomitant]
  3. PRIMAXIN [Concomitant]
  4. VANCOMYCIN [Concomitant]
  5. VICOMINE [Concomitant]

REACTIONS (3)
  - APLASTIC ANAEMIA [None]
  - FEBRILE NEUTROPENIA [None]
  - PROTEIN TOTAL ABNORMAL [None]
